FAERS Safety Report 16647306 (Version 7)
Quarter: 2019Q4

REPORT INFORMATION
  Report Type: Spontaneous
  Country: US (occurrence: US)
  Receive Date: 20190730
  Receipt Date: 20191017
  Transmission Date: 20200122
  Serious: No
  Sender: FDA-Public Use
  Company Number: US-PFIZER INC-2019315024

PATIENT
  Age: 83 Year
  Sex: Female
  Weight: 88 kg

DRUGS (4)
  1. LEVOTHYROXINE. [Concomitant]
     Active Substance: LEVOTHYROXINE
     Indication: THYROID DISORDER
     Dosage: 88 MG, 1X/DAY (ONCE A DAY IN THE MORNING ON AN EMPTY STOMACH)
     Route: 048
     Dates: start: 1980
  2. LYRICA [Suspect]
     Active Substance: PREGABALIN
     Indication: NEUROPATHY PERIPHERAL
     Dosage: 50 MG, 1X/DAY (ONCE EVERY NIGHT BEFORE BED)
     Route: 048
     Dates: start: 201812, end: 20190712
  3. LYRICA [Suspect]
     Active Substance: PREGABALIN
     Dosage: 100 MG, 1X/DAY (2 PILLS A DAY)
  4. LYRICA [Suspect]
     Active Substance: PREGABALIN
     Indication: PAIN
     Dosage: 50 MG, 1X/DAY (1 PILL A DAY)
     Route: 048
     Dates: start: 201812

REACTIONS (5)
  - Peripheral swelling [Unknown]
  - Hypoacusis [Unknown]
  - Weight decreased [Unknown]
  - Herpes zoster [Recovering/Resolving]
  - Malaise [Unknown]

NARRATIVE: CASE EVENT DATE: 201907
